FAERS Safety Report 24148610 (Version 6)
Quarter: 2024Q3

REPORT INFORMATION
  Report Type: Report from Study
  Country: US (occurrence: US)
  Receive Date: 20240729
  Receipt Date: 20240927
  Transmission Date: 20241017
  Serious: Yes (Other)
  Sender: DAIICHI
  Company Number: US-DAIICHI SANKYO, INC.-DSU-2024-135232AA

PATIENT
  Age: 65 Year
  Sex: Female

DRUGS (2)
  1. PEXIDARTINIB [Suspect]
     Active Substance: PEXIDARTINIB
     Indication: Desmoid tumour
     Dosage: 250 MG (125 MG X 2 CAPSULES), BID
     Route: 048
     Dates: start: 20240713
  2. PEXIDARTINIB [Suspect]
     Active Substance: PEXIDARTINIB
     Dosage: 1 DOSAGE FORM, BID
     Route: 048

REACTIONS (23)
  - Hepatitis [Recovering/Resolving]
  - Aspartate aminotransferase increased [Recovered/Resolved]
  - Alanine aminotransferase increased [Recovered/Resolved]
  - Blood alkaline phosphatase increased [Recovered/Resolved]
  - Gamma-glutamyltransferase increased [Recovered/Resolved]
  - Liver function test increased [Recovered/Resolved]
  - Depressed mood [Unknown]
  - Taste disorder [Unknown]
  - Taste disorder [Unknown]
  - Neck pain [Unknown]
  - Arthralgia [Unknown]
  - Pain [Unknown]
  - Fatigue [Recovered/Resolved]
  - Asthenia [Unknown]
  - Fatigue [Unknown]
  - Dysgeusia [Unknown]
  - Fatigue [Not Recovered/Not Resolved]
  - Dizziness [Not Recovered/Not Resolved]
  - Swelling [Recovering/Resolving]
  - Impaired work ability [Not Recovered/Not Resolved]
  - Insurance issue [Unknown]
  - Product distribution issue [Unknown]
  - Off label use [Unknown]

NARRATIVE: CASE EVENT DATE: 20240830
